FAERS Safety Report 7700787-6 (Version None)
Quarter: 2011Q3

REPORT INFORMATION
  Report Type: 
  Country: None (occurrence: None)
  Receive Date: 20110822
  Receipt Date: 20110817
  Transmission Date: 20111222
  Serious: Yes (Other)
  Sender: FDA-Public Use
  Company Number: US-ROCHE-778106

PATIENT
  Sex: Male
  Weight: 47.2 kg

DRUGS (2)
  1. MINOCYCLINE HCL [Concomitant]
     Route: 048
  2. ACCUTANE [Suspect]
     Indication: ACNE
     Route: 065
     Dates: start: 20070401, end: 20070901

REACTIONS (6)
  - LIP DRY [None]
  - STRESS [None]
  - DEPRESSION [None]
  - IRRITABLE BOWEL SYNDROME [None]
  - INFLAMMATORY BOWEL DISEASE [None]
  - COLITIS ULCERATIVE [None]
